FAERS Safety Report 8824339 (Version 2)
Quarter: 2012Q4

REPORT INFORMATION
  Report Type: 
  Country: SG (occurrence: US)
  Receive Date: 20121004
  Receipt Date: 20121017
  Transmission Date: 20130627
  Serious: Yes (Other)
  Sender: FDA-Public Use
  Company Number: US-RANBAXY-2012US-60735

PATIENT
  Sex: Male

DRUGS (1)
  1. CIPROFLOXACIN [Suspect]
     Indication: URINARY TRACT INFECTION
     Dosage: 500 mg, bid
     Route: 048

REACTIONS (3)
  - Cutaneous vasculitis [Recovered/Resolved]
  - Pyrexia [Unknown]
  - Arthritis [Unknown]
